FAERS Safety Report 13276891 (Version 4)
Quarter: 2017Q2

REPORT INFORMATION
  Report Type: Report from Study
  Country: US (occurrence: US)
  Receive Date: 20170228
  Receipt Date: 20170412
  Transmission Date: 20170830
  Serious: Yes (Hospitalization, Other)
  Sender: FDA-Public Use
  Company Number: US-GILEAD-2017-0259574

PATIENT
  Age: 72 Year
  Sex: Female

DRUGS (2)
  1. AMBRISENTAN [Suspect]
     Active Substance: AMBRISENTAN
     Indication: PULMONARY ARTERIAL HYPERTENSION
     Dosage: 10 MG, QD
     Route: 065
     Dates: start: 20100902
  2. LISINOPRIL. [Concomitant]
     Active Substance: LISINOPRIL

REACTIONS (7)
  - Chest pain [Unknown]
  - Haemorrhage [Unknown]
  - Blood pressure increased [Unknown]
  - Aortic valve disease [Unknown]
  - Dyspnoea [Unknown]
  - Heart rate increased [Unknown]
  - Packed red blood cell transfusion [Recovered/Resolved]

NARRATIVE: CASE EVENT DATE: 20170210
